FAERS Safety Report 9911901 (Version 2)
Quarter: 2014Q1

REPORT INFORMATION
  Report Type: Spontaneous
  Country: US (occurrence: US)
  Receive Date: 20140219
  Receipt Date: 20140219
  Transmission Date: 20141002
  Serious: No
  Sender: FDA-Public Use
  Company Number: US-MYLANLABS-2013S1016809

PATIENT
  Age: 60 Year
  Sex: Male
  Weight: 114.74 kg

DRUGS (13)
  1. EPIPEN [Suspect]
     Indication: SWELLING
     Dosage: 0.3 MG, AS NEEDED
     Route: 030
     Dates: end: 20130718
  2. EPIPEN [Suspect]
     Indication: ANAPHYLACTIC REACTION
     Dosage: 0.3 MG, AS NEEDED
     Route: 030
     Dates: end: 20130718
  3. EPIPEN [Suspect]
     Indication: SWELLING
  4. EPIPEN [Suspect]
     Indication: ANAPHYLACTIC REACTION
  5. DIPHENHYDRAMINE [Suspect]
     Indication: SWELLING
     Dosage: 2 TABLETS TAKEN PER DAY
  6. TRAMADOL [Concomitant]
     Dosage: UNK
     Route: 065
  7. VALIUM [Concomitant]
     Dosage: UNK
     Route: 065
  8. PRAVASTATIN [Concomitant]
     Dosage: UNK
     Route: 065
  9. GLYBURIDE [Concomitant]
     Dosage: UNK
     Route: 065
  10. STRATTERA [Concomitant]
     Dosage: UNK
     Route: 065
  11. VESICARE [Concomitant]
     Dosage: UNK
     Route: 065
  12. PULMICORT [Concomitant]
     Dosage: UNK
     Route: 065
  13. ZOLPIDEM TARTRATE [Concomitant]
     Dosage: UNK
     Route: 065

REACTIONS (5)
  - Expired drug administered [Recovered/Resolved]
  - Drug ineffective [Recovered/Resolved]
  - Restless legs syndrome [Not Recovered/Not Resolved]
  - Insomnia [Not Recovered/Not Resolved]
  - Somnolence [Not Recovered/Not Resolved]
